FAERS Safety Report 14176615 (Version 1)
Quarter: 2017Q4

REPORT INFORMATION
  Report Type: Report from Study
  Country: None (occurrence: NL)
  Receive Date: 20171110
  Receipt Date: 20171110
  Transmission Date: 20180321
  Serious: Yes (Death)
  Sender: FDA-Public Use
  Company Number: NL-ABBVIE-17K-114-2159270-00

PATIENT
  Age: 79 Year
  Sex: Female

DRUGS (1)
  1. DUODOPA [Suspect]
     Active Substance: CARBIDOPA\LEVODOPA
     Indication: PARKINSON^S DISEASE
     Dosage: MD 10, CD 2, ED 1
     Route: 050
     Dates: start: 20160725

REACTIONS (1)
  - Death [Fatal]

NARRATIVE: CASE EVENT DATE: 20171107
